FAERS Safety Report 6372391-6 (Version None)
Quarter: 2009Q3

REPORT INFORMATION
  Report Type: 
  Country: None (occurrence: None)
  Receive Date: 20090924
  Receipt Date: 20050128
  Transmission Date: 20100115
  Serious: Yes (Other)
  Sender: FDA-Public Use
  Company Number: US-ASTRAZENECA-2008UW22790

PATIENT

DRUGS (2)
  1. SEROQUEL [Suspect]
     Dosage: TOOK 90 TABLETS OF SEROQUEL
     Route: 048
  2. EFFEXOR [Suspect]
     Dosage: TOOK 90 PILLS OF EFFEXOR
     Route: 048

REACTIONS (2)
  - INTENTIONAL OVERDOSE [None]
  - SUICIDE ATTEMPT [None]
